FAERS Safety Report 16607873 (Version 1)
Quarter: 2019Q3

REPORT INFORMATION
  Report Type: Spontaneous
  Country: FR (occurrence: FR)
  Receive Date: 20190722
  Receipt Date: 20190722
  Transmission Date: 20191004
  Serious: Yes (Hospitalization)
  Sender: FDA-Public Use
  Company Number: FR-SA-2019SA189404

PATIENT
  Age: 89 Year
  Sex: Female
  Weight: 98 kg

DRUGS (2)
  1. LOVENOX [Suspect]
     Active Substance: ENOXAPARIN SODIUM
     Indication: PHLEBITIS
     Dosage: 1.6 ML, QD
     Route: 058
     Dates: start: 20190425, end: 20190510
  2. WARFARIN SODIUM. [Suspect]
     Active Substance: WARFARIN SODIUM
     Indication: PHLEBITIS
     Dosage: UNK UNK, UNK
     Route: 048
     Dates: start: 20190506, end: 20190510

REACTIONS (3)
  - Red blood cell count decreased [Recovered/Resolved]
  - Acute kidney injury [Recovered/Resolved]
  - Haematoma [Recovered/Resolved]

NARRATIVE: CASE EVENT DATE: 20190508
